FAERS Safety Report 7520866-6 (Version None)
Quarter: 2011Q2

REPORT INFORMATION
  Report Type: 
  Country: None (occurrence: None)
  Receive Date: 20110603
  Receipt Date: 20101120
  Transmission Date: 20111010
  Serious: Yes (Hospitalization)
  Sender: FDA-Public Use
  Company Number: US-BAYER-201047834GPV

PATIENT
  Age: 7 Month
  Sex: Male

DRUGS (29)
  1. HELIXATE FS [Suspect]
     Dosage: CONTINUOUS INFUSION
  2. HELIXATE FS [Suspect]
     Dosage: POSTOPERATIVE BOLUS DOSE
  3. HELIXATE FS [Suspect]
     Dosage: DAY 2 POSTOPERATIVE BOLUS DOSE
  4. HELIXATE FS [Suspect]
     Dosage: CONTINUOUS INFUSION BETWEEN 15 AND 25 IU/KG/HR
  5. HELIXATE FS [Suspect]
  6. TRASYLOL [Concomitant]
     Dosage: CONTINUOUS INFUSION OF 20000 U/KG/HR
  7. PLASMA-LYTE 56 AND DEXTROSE 5% IN PLASTIC CONTAINER [Concomitant]
  8. HELIXATE FS [Suspect]
     Dosage: PREOPERATIVE BOLUS DOSE
  9. CITALOPRAM HYDROBROMIDE [Concomitant]
     Indication: ANAESTHESIA
  10. HEPARIN [Concomitant]
     Indication: ANTICOAGULANT THERAPY
     Dosage: 500 U/KG
  11. HEPARIN [Concomitant]
     Dosage: PRIMING VOLUME 5000 U
  12. FACTOR VIIA [Concomitant]
     Dosage: REPEATED DOSES
  13. HELIXATE FS [Suspect]
     Dosage: BOLUS DOSE
  14. HELIXATE FS [Suspect]
     Dosage: CONTINUOUS INFUSION
  15. TRASYLOL [Concomitant]
     Dosage: 40000 U/KG
  16. RED BLOOD CELLS [Concomitant]
  17. PROTHROMBINKOMPLEX-KONZENTRAT [FACT II,FACT IX COMP HUMAN,FACT VII,FAC [Concomitant]
     Indication: HAEMORRHAGE
  18. HELIXATE FS [Suspect]
     Dosage: CONTINUOUS INFUSION
  19. HELIXATE FS [Suspect]
     Dosage: EVERY 8 HOURS
     Route: 042
  20. CRYOPRECIPITATES [Concomitant]
  21. THROMBIN LOCAL SOLUTION [Concomitant]
     Indication: HAEMORRHAGE
     Route: 061
  22. HELIXATE FS [Suspect]
     Dosage: CONTINUOUS INFUSION
  23. TRASYLOL [Concomitant]
     Dosage: BOLUS OF 40000 U/KG
  24. SODIUM BICARBONATE [Concomitant]
  25. PLATELETS [Concomitant]
  26. FACTOR VIIA [Concomitant]
     Route: 042
  27. AMINOCAPROIC ACID [Concomitant]
  28. ALBUMIN NOS [Concomitant]
     Dosage: 25% ALBUMIN IN PRIMING VOLUME
  29. MANNITOL [Concomitant]
     Dosage: 25% IN PRIMING VOLUME

REACTIONS (1)
  - FACTOR VIII INHIBITION [None]
